FAERS Safety Report 8365630-3 (Version None)
Quarter: 2012Q2

REPORT INFORMATION
  Report Type: 
  Country: None (occurrence: None)
  Receive Date: 20120516
  Receipt Date: 20120509
  Transmission Date: 20120825
  Serious: Yes (Hospitalization, Other)
  Sender: FDA-Public Use
  Company Number: US-MERCK-1110USA00597

PATIENT
  Age: 59 Year
  Sex: Female
  Weight: 41 kg

DRUGS (15)
  1. OXYCODONE HYDROCHLORIDE [Concomitant]
     Indication: PAIN
     Route: 048
  2. MS CONTIN [Concomitant]
     Route: 065
  3. FOSAMAX [Suspect]
     Indication: OSTEOPOROSIS
     Route: 048
     Dates: start: 20080425, end: 20090724
  4. REMICADE [Concomitant]
     Route: 065
     Dates: end: 20071101
  5. PYRIDOXINE [Concomitant]
     Indication: VITAMIN B COMPLEX DEFICIENCY
     Route: 065
  6. ALENDRONATE SODIUM [Suspect]
     Route: 065
     Dates: start: 20080601, end: 20090701
  7. METHOTREXATE SODIUM [Concomitant]
     Route: 048
  8. MS CONTIN [Concomitant]
     Indication: PAIN MANAGEMENT
     Route: 065
  9. FOSAMAX [Suspect]
     Route: 048
     Dates: start: 20080425, end: 20090724
  10. PREDNISONE [Concomitant]
     Indication: RHEUMATOID ARTHRITIS
     Route: 065
     Dates: start: 20070101, end: 20110101
  11. METHOTREXATE SODIUM [Concomitant]
     Indication: RHEUMATOID ARTHRITIS
     Route: 058
  12. LEVOTHYROXINE SODIUM [Concomitant]
     Indication: BLOOD THYROID STIMULATING HORMONE DECREASED
     Route: 065
  13. REMICADE [Concomitant]
     Indication: RHEUMATOID ARTHRITIS
     Route: 041
     Dates: start: 20080601
  14. REMICADE [Concomitant]
     Route: 065
     Dates: start: 20100401
  15. DARVOCET-N 50 [Concomitant]
     Route: 065

REACTIONS (64)
  - SMALL INTESTINAL OBSTRUCTION [None]
  - INSOMNIA [None]
  - ACQUIRED OESOPHAGEAL WEB [None]
  - EXPOSED BONE IN JAW [None]
  - CONSTIPATION [None]
  - OSTEOARTHRITIS [None]
  - JOINT ARTHROPLASTY [None]
  - WEIGHT DECREASED [None]
  - OSTEOMYELITIS [None]
  - OEDEMA PERIPHERAL [None]
  - FATIGUE [None]
  - DUODENAL STENOSIS [None]
  - ANAEMIA [None]
  - BREAST CALCIFICATIONS [None]
  - COLON ADENOMA [None]
  - RENAL CYST [None]
  - NORMOCHROMIC NORMOCYTIC ANAEMIA [None]
  - IMPAIRED HEALING [None]
  - MUSCULAR WEAKNESS [None]
  - FAECAL INCONTINENCE [None]
  - ESCHERICHIA INFECTION [None]
  - FRACTURE DISPLACEMENT [None]
  - BUNION [None]
  - HAEMORRHOIDS [None]
  - INADEQUATE DIET [None]
  - POOR VENOUS ACCESS [None]
  - PANCREATIC ATROPHY [None]
  - DIARRHOEA [None]
  - TOOTH EXTRACTION [None]
  - DYSPHONIA [None]
  - HIATUS HERNIA [None]
  - ANASTOMOTIC STENOSIS [None]
  - INTERVERTEBRAL DISC DEGENERATION [None]
  - DEPRESSION [None]
  - DEVICE FAILURE [None]
  - MALNUTRITION [None]
  - JOINT SURGERY [None]
  - INTERVERTEBRAL DISC DISORDER [None]
  - TOOTH DISORDER [None]
  - TENDON INJURY [None]
  - OBSTRUCTION GASTRIC [None]
  - EOSINOPHIL COUNT INCREASED [None]
  - SPINAL OSTEOARTHRITIS [None]
  - MICROCYTOSIS [None]
  - TOOTH FRACTURE [None]
  - STOMATITIS [None]
  - ARTHRITIS BACTERIAL [None]
  - NEUROPATHY PERIPHERAL [None]
  - IMMUNE SYSTEM DISORDER [None]
  - FALL [None]
  - HIP FRACTURE [None]
  - OSTEONECROSIS OF JAW [None]
  - SPONDYLOLISTHESIS [None]
  - ANTIBODY TEST POSITIVE [None]
  - ANXIETY [None]
  - CARPAL TUNNEL SYNDROME [None]
  - DYSPEPSIA [None]
  - BLOOD THYROID STIMULATING HORMONE DECREASED [None]
  - SPINAL FRACTURE [None]
  - SPINAL COMPRESSION FRACTURE [None]
  - HYPOVITAMINOSIS [None]
  - ROTATOR CUFF SYNDROME [None]
  - NASAL SEPTUM DISORDER [None]
  - FRACTURE [None]
